FAERS Safety Report 4897802-4 (Version None)
Quarter: 2006Q1

REPORT INFORMATION
  Report Type: 
  Country: None (occurrence: None)
  Receive Date: 20060130
  Receipt Date: 20060117
  Transmission Date: 20060701
  Serious: Yes (Death, Hospitalization)
  Sender: FDA-Public Use
  Company Number: GXKR2006US00507

PATIENT
  Age: 59 Year
  Sex: Male

DRUGS (9)
  1. AMOXICILLIN + CLAVULANATE POTASSIUM (NGX) (AMOXICILLIN, CLAVULANATE) 5 [Suspect]
     Indication: CELLULITIS
     Dosage: 625 MD, BID
     Dates: start: 20030606
  2. AMOXICILLIN [Suspect]
     Indication: ERYTHEMA
     Dosage: 500 MG, TID
     Dates: start: 20030705
  3. ATENOLOL [Concomitant]
  4. TRIAMTERENE AND HYDROCHLOROTHIAZID(HYDROCHLOROTHIAZIDE, TRIAMTERENE) [Concomitant]
  5. ATORVASTATIN CALCIUM [Concomitant]
  6. TESTOSTERONE [Concomitant]
  7. SILDENAFIL CITRATE [Concomitant]
  8. HYDROCODONE/PARACETAMOL (HYDROCODONE, PARACETAMOL) [Concomitant]
  9. NAPROXEN [Concomitant]

REACTIONS (9)
  - COAGULOPATHY [None]
  - ERYTHEMA [None]
  - HEPATIC ENCEPHALOPATHY [None]
  - HEPATIC FAILURE [None]
  - HEPATITIS ACUTE [None]
  - HYPOTENSION [None]
  - MULTI-ORGAN FAILURE [None]
  - NECROSIS [None]
  - RESPIRATORY FAILURE [None]
